FAERS Safety Report 23980101 (Version 1)
Quarter: 2024Q2

REPORT INFORMATION
  Report Type: Spontaneous
  Country: US (occurrence: US)
  Receive Date: 20240617
  Receipt Date: 20240617
  Transmission Date: 20240716
  Serious: No
  Sender: FDA-Public Use
  Company Number: US-STRIDES ARCOLAB LIMITED-2024SP000584

PATIENT
  Age: 9 Year
  Sex: Female

DRUGS (1)
  1. DEXTROAMPHETAMINE SULFATE [Suspect]
     Active Substance: DEXTROAMPHETAMINE SULFATE
     Indication: Vulvovaginitis
     Dosage: 15 MILLIGRAM PER DAY (EXTENDED RELEASE CAPSULES)
     Route: 065

REACTIONS (1)
  - Off label use [Unknown]
